FAERS Safety Report 4661596-8 (Version None)
Quarter: 2005Q2

REPORT INFORMATION
  Report Type: 
  Country: None (occurrence: None)
  Receive Date: 20050513
  Receipt Date: 20050117
  Transmission Date: 20051028
  Serious: Yes (Hospitalization)
  Sender: FDA-Public Use
  Company Number: US-MERCK-0501USA02850

PATIENT
  Age: 59 Year
  Sex: Female
  Weight: 70 kg

DRUGS (5)
  1. VIOXX [Suspect]
     Indication: ARTHRITIS
     Route: 048
     Dates: start: 19991113, end: 20020911
  2. VIOXX [Suspect]
     Route: 048
     Dates: start: 19991113, end: 20020911
  3. VIOXX [Suspect]
     Route: 048
     Dates: start: 20020921, end: 20031024
  4. SYNTHROID [Concomitant]
     Route: 065
  5. MAXZIDE [Concomitant]
     Route: 065

REACTIONS (29)
  - ABDOMINAL PAIN [None]
  - ATHEROSCLEROSIS [None]
  - BLOOD CHOLESTEROL INCREASED [None]
  - CARDIOMEGALY [None]
  - CARPAL TUNNEL SYNDROME [None]
  - CEREBROVASCULAR ACCIDENT [None]
  - CHEST PAIN [None]
  - DECREASED APPETITE [None]
  - DEEP VEIN THROMBOSIS [None]
  - DEPRESSION [None]
  - DIZZINESS [None]
  - DYSPEPSIA [None]
  - DYSPNOEA EXERTIONAL [None]
  - ELECTROCARDIOGRAM ABNORMAL [None]
  - FATIGUE [None]
  - GASTRITIS [None]
  - HYPERTENSION [None]
  - LIVER FUNCTION TEST ABNORMAL [None]
  - MIGRAINE WITH AURA [None]
  - OEDEMA PERIPHERAL [None]
  - OESOPHAGITIS [None]
  - OSTEOARTHRITIS [None]
  - PALPITATIONS [None]
  - SPONDYLOLYSIS [None]
  - STOMACH DISCOMFORT [None]
  - STRESS [None]
  - TRANSIENT ISCHAEMIC ATTACK [None]
  - URGE INCONTINENCE [None]
  - WOUND DEHISCENCE [None]
